FAERS Safety Report 23935241 (Version 1)
Quarter: 2024Q2

REPORT INFORMATION
  Report Type: Other
  Country: PL (occurrence: None)
  Receive Date: 20240604
  Receipt Date: 20240604
  Transmission Date: 20240715
  Serious: Yes (Hospitalization)
  Sender: FDA-Public Use
  Company Number: PL-MLMSERVICE-20240522-PI069056-00271-2

PATIENT
  Age: 53 Year
  Sex: Male

DRUGS (6)
  1. MYCOPHENOLATE MOFETIL [Suspect]
     Active Substance: MYCOPHENOLATE MOFETIL
     Indication: Immunosuppression
     Route: 065
     Dates: start: 202001, end: 202004
  2. TACROLIMUS [Suspect]
     Active Substance: TACROLIMUS
     Indication: Immunosuppression
     Route: 065
     Dates: start: 202001, end: 202004
  3. TACROLIMUS [Suspect]
     Active Substance: TACROLIMUS
     Dosage: REDUCED TO HALF-DOSE
     Route: 065
     Dates: start: 202004
  4. PREDNISONE [Suspect]
     Active Substance: PREDNISONE
     Indication: Immunosuppression
     Route: 065
     Dates: start: 202001, end: 2020
  5. PREDNISONE [Suspect]
     Active Substance: PREDNISONE
     Dosage: DOSES WERE REDUCED GRADUALLY
     Route: 065
     Dates: start: 2020, end: 2020
  6. PREDNISONE [Suspect]
     Active Substance: PREDNISONE
     Dosage: REDUCED AND TERMINATED WITHIN 3 MONTHS
     Route: 065
     Dates: start: 2020, end: 2020

REACTIONS (8)
  - Pneumothorax [Recovered/Resolved]
  - Pneumocystis jirovecii pneumonia [Recovered/Resolved]
  - Cytomegalovirus infection [Recovered/Resolved]
  - Interstitial lung disease [Recovered/Resolved]
  - Neutropenia [Recovering/Resolving]
  - Leukopenia [Recovering/Resolving]
  - Acute kidney injury [Recovering/Resolving]
  - Anaemia [Recovering/Resolving]

NARRATIVE: CASE EVENT DATE: 20200301
